FAERS Safety Report 17484368 (Version 5)
Quarter: 2023Q2

REPORT INFORMATION
  Report Type: Spontaneous
  Country: US (occurrence: US)
  Receive Date: 20200302
  Receipt Date: 20230421
  Transmission Date: 20230721
  Serious: Yes (Other)
  Sender: FDA-Public Use
  Company Number: US-GILEAD-2020-0452914

PATIENT
  Age: 53 Year
  Sex: Male
  Weight: 65.76 kg

DRUGS (43)
  1. VIREAD [Suspect]
     Active Substance: TENOFOVIR DISOPROXIL FUMARATE
     Indication: HIV infection
     Dosage: UNK
     Route: 048
     Dates: start: 20110126, end: 20160112
  2. TRUVADA [Suspect]
     Active Substance: EMTRICITABINE\TENOFOVIR DISOPROXIL FUMARATE
     Indication: HIV infection
     Dosage: UNK
     Route: 048
     Dates: start: 20110109, end: 20110125
  3. ACETAMINOPHEN [Concomitant]
     Active Substance: ACETAMINOPHEN
  4. ALENDRONATE [Concomitant]
     Active Substance: ALENDRONATE SODIUM
  5. AMITRIPTYLINE [Concomitant]
     Active Substance: AMITRIPTYLINE
  6. AMOXICILLIN [Concomitant]
     Active Substance: AMOXICILLIN
  7. DIURIL [CHLOROTHIAZIDE SODIUM] [Concomitant]
  8. LANSOPRAZOLE [Concomitant]
     Active Substance: LANSOPRAZOLE
  9. PENICILLIN [Concomitant]
     Active Substance: PENICILLIN
  10. PRAVASTATIN [Concomitant]
     Active Substance: PRAVASTATIN
  11. COMBIVIR [Concomitant]
     Active Substance: LAMIVUDINE\ZIDOVUDINE
  12. EPIVIR [Concomitant]
     Active Substance: LAMIVUDINE
  13. EPZICOM [Concomitant]
     Active Substance: ABACAVIR SULFATE\LAMIVUDINE
  14. EVOTAZ [Concomitant]
     Active Substance: ATAZANAVIR SULFATE\COBICISTAT
  15. INTELENCE [Concomitant]
     Active Substance: ETRAVIRINE
  16. ISENTRESS [Concomitant]
     Active Substance: RALTEGRAVIR POTASSIUM
  17. NORVIR [Concomitant]
     Active Substance: RITONAVIR
  18. PREZCOBIX [Concomitant]
     Active Substance: COBICISTAT\DARUNAVIR ETHANOLATE
  19. REYATAZ [Concomitant]
     Active Substance: ATAZANAVIR SULFATE
  20. TIVICAY [Concomitant]
     Active Substance: DOLUTEGRAVIR SODIUM
  21. VIRAMUNE [Concomitant]
     Active Substance: NEVIRAPINE
  22. ACETAMINOPHEN\HYDROCODONE [Concomitant]
     Active Substance: ACETAMINOPHEN\HYDROCODONE
  23. ATENOLOL [Concomitant]
     Active Substance: ATENOLOL
  24. TERAZOSIN [Concomitant]
     Active Substance: TERAZOSIN HYDROCHLORIDE
  25. NORVASC [Concomitant]
     Active Substance: AMLODIPINE BESYLATE
  26. COREG [Concomitant]
     Active Substance: CARVEDILOL
  27. METOPROLOL [Concomitant]
     Active Substance: METOPROLOL
  28. DIURIL [CHLOROTHIAZIDE] [Concomitant]
  29. LANSOPRAZOLE [Concomitant]
     Active Substance: LANSOPRAZOLE
  30. NAPROXEN [Concomitant]
     Active Substance: NAPROXEN
  31. IBUPROFEN [Concomitant]
     Active Substance: IBUPROFEN
  32. CHLORHEXIDINE [Concomitant]
     Active Substance: CHLORHEXIDINE
  33. CYCLOBENZAPRINE [Concomitant]
     Active Substance: CYCLOBENZAPRINE
  34. VIGAMOX [Concomitant]
     Active Substance: MOXIFLOXACIN HYDROCHLORIDE
  35. TRIFLURIDINE [Concomitant]
     Active Substance: TRIFLURIDINE
  36. ETODOLAC [Concomitant]
     Active Substance: ETODOLAC
  37. TRAMADOL [Concomitant]
     Active Substance: TRAMADOL
  38. PEG 3350 [Concomitant]
     Active Substance: POLYETHYLENE GLYCOL 3350
  39. FLUCONAZOLE [Concomitant]
     Active Substance: FLUCONAZOLE
  40. TERBINAFINE [Concomitant]
     Active Substance: TERBINAFINE
  41. ALBUTEROL [Concomitant]
     Active Substance: ALBUTEROL
  42. MEGESTROL [Concomitant]
     Active Substance: MEGESTROL
  43. ZERIT [Concomitant]
     Active Substance: STAVUDINE

REACTIONS (19)
  - Chronic kidney disease [Not Recovered/Not Resolved]
  - Osteoporosis [Not Recovered/Not Resolved]
  - Chronic kidney disease [Not Recovered/Not Resolved]
  - Multiple fractures [Unknown]
  - Stress fracture [Recovered/Resolved]
  - Rib fracture [Recovered/Resolved]
  - Renal tubular disorder [Not Recovered/Not Resolved]
  - Renal tubular dysfunction [Not Recovered/Not Resolved]
  - Osteomalacia [Recovered/Resolved]
  - Renal failure [Not Recovered/Not Resolved]
  - Economic problem [Unknown]
  - Anhedonia [Unknown]
  - Emotional distress [Unknown]
  - Anxiety [Unknown]
  - Pain [Unknown]
  - Bone density decreased [Unknown]
  - Osteopenia [Not Recovered/Not Resolved]
  - Hyperparathyroidism secondary [Recovered/Resolved]
  - Hypophosphataemia [Not Recovered/Not Resolved]

NARRATIVE: CASE EVENT DATE: 20120718
